FAERS Safety Report 13266822 (Version 1)
Quarter: 2017Q1

REPORT INFORMATION
  Report Type: Spontaneous
  Country: US (occurrence: US)
  Receive Date: 20170224
  Receipt Date: 20170224
  Transmission Date: 20170428
  Serious: Yes (Hospitalization)
  Sender: FDA-Public Use
  Company Number: US-ROCHE-1897732

PATIENT
  Sex: Female

DRUGS (3)
  1. VALCYTE [Suspect]
     Active Substance: VALGANCICLOVIR HYDROCHLORIDE
     Indication: CYTOMEGALOVIRUS INFECTION
  2. CYTOVENE IV [Concomitant]
     Active Substance: GANCICLOVIR SODIUM
     Dosage: ONGOING;UNKNOWN
     Route: 048
  3. VALCYTE [Suspect]
     Active Substance: VALGANCICLOVIR HYDROCHLORIDE
     Indication: EPSTEIN-BARR VIRUS INFECTION
     Dosage: ONGOING;YES
     Route: 048
     Dates: start: 2014

REACTIONS (2)
  - Intestine transplant rejection [Unknown]
  - Lymphoma [Unknown]
